FAERS Safety Report 19384338 (Version 1)
Quarter: 2021Q2

REPORT INFORMATION
  Report Type: Spontaneous
  Country: JP (occurrence: JP)
  Receive Date: 20210608
  Receipt Date: 20210608
  Transmission Date: 20210717
  Serious: Yes (Other)
  Sender: FDA-Public Use
  Company Number: JP-LUPIN PHARMACEUTICALS INC.-2021-08831

PATIENT
  Sex: Female

DRUGS (10)
  1. PHENOBARBITAL. [Suspect]
     Active Substance: PHENOBARBITAL
     Indication: CLONIC CONVULSION
     Dosage: UNK
     Route: 065
  2. VITAMIN B6 [Suspect]
     Active Substance: PYRIDOXINE HYDROCHLORIDE
     Indication: CLONIC CONVULSION
     Dosage: UNK
     Route: 065
  3. CARBAMAZEPINE. [Suspect]
     Active Substance: CARBAMAZEPINE
     Indication: CLONIC CONVULSION
     Dosage: UNK
     Route: 065
  4. POTASSIUM CHLORIDE. [Suspect]
     Active Substance: POTASSIUM CHLORIDE
     Indication: ALEXANDER DISEASE
  5. PHENOBARBITAL. [Suspect]
     Active Substance: PHENOBARBITAL
     Indication: ALEXANDER DISEASE
  6. ZONISAMIDE. [Suspect]
     Active Substance: ZONISAMIDE
     Indication: CLONIC CONVULSION
     Dosage: UNK
     Route: 065
  7. POTASSIUM CHLORIDE. [Suspect]
     Active Substance: POTASSIUM CHLORIDE
     Indication: CLONIC CONVULSION
     Dosage: UNK
     Route: 065
  8. CARBAMAZEPINE. [Suspect]
     Active Substance: CARBAMAZEPINE
     Indication: ALEXANDER DISEASE
  9. VITAMIN B6 [Suspect]
     Active Substance: PYRIDOXINE HYDROCHLORIDE
     Indication: ALEXANDER DISEASE
  10. ZONISAMIDE. [Suspect]
     Active Substance: ZONISAMIDE
     Indication: ALEXANDER DISEASE

REACTIONS (1)
  - Drug ineffective [Unknown]
